FAERS Safety Report 9404116 (Version 2)
Quarter: 2013Q4

REPORT INFORMATION
  Report Type: Spontaneous
  Country: US (occurrence: US)
  Receive Date: 20130717
  Receipt Date: 20131030
  Transmission Date: 20140711
  Serious: No
  Sender: FDA-Public Use
  Company Number: US-BIOGENIDEC-2013BI017699

PATIENT
  Age: 64 Year
  Sex: Female

DRUGS (8)
  1. AVONEX [Suspect]
     Indication: MULTIPLE SCLEROSIS
     Route: 030
     Dates: start: 20010309, end: 2003
  2. AVONEX [Suspect]
     Indication: MULTIPLE SCLEROSIS
     Route: 030
     Dates: start: 2003, end: 2013
  3. AVONEX [Suspect]
     Indication: MULTIPLE SCLEROSIS
     Route: 030
     Dates: start: 2013
  4. CLOBETASOL [Concomitant]
     Indication: PSORIASIS
     Route: 061
  5. BACLOFEN [Concomitant]
     Indication: RESTLESS LEGS SYNDROME
  6. NEURONTIN [Concomitant]
     Indication: RESTLESS LEGS SYNDROME
  7. REQUIP [Concomitant]
     Indication: RESTLESS LEGS SYNDROME
  8. SINEMET [Concomitant]
     Indication: RESTLESS LEGS SYNDROME

REACTIONS (7)
  - Injection site haemorrhage [Recovered/Resolved]
  - Dyskinesia [Not Recovered/Not Resolved]
  - Injection site bruising [Recovered/Resolved]
  - Nervousness [Not Recovered/Not Resolved]
  - Injection site reaction [Recovered/Resolved]
  - Injection site pain [Recovered/Resolved]
  - Injection site erythema [Recovered/Resolved]
